FAERS Safety Report 7290632-8 (Version None)
Quarter: 2011Q1

REPORT INFORMATION
  Report Type: 
  Country: None (occurrence: None)
  Receive Date: 20110214
  Receipt Date: 20110207
  Transmission Date: 20110831
  Serious: Yes (Hospitalization, Other)
  Sender: FDA-Public Use
  Company Number: IT-JNJFOC-20101107625

PATIENT
  Sex: Male

DRUGS (2)
  1. DILTIAZEM [Suspect]
     Indication: ACCIDENTAL EXPOSURE
     Route: 065
  2. RISPERDAL [Suspect]
     Indication: ACCIDENTAL EXPOSURE
     Route: 048

REACTIONS (3)
  - HYPOTENSION [None]
  - VERTIGO [None]
  - ACCIDENTAL EXPOSURE [None]
